FAERS Safety Report 24134598 (Version 1)
Quarter: 2024Q3

REPORT INFORMATION
  Report Type: Spontaneous
  Country: PL (occurrence: PL)
  Receive Date: 20240725
  Receipt Date: 20240725
  Transmission Date: 20241016
  Serious: Yes (Hospitalization, Other)
  Sender: NOVO NORDISK
  Company Number: PL-NOVOPROD-1256890

PATIENT
  Age: 36 Year
  Sex: Male
  Weight: 115 kg

DRUGS (5)
  1. OZEMPIC [Suspect]
     Active Substance: SEMAGLUTIDE
     Indication: Type 2 diabetes mellitus
     Dosage: 0.25 MG, QW
     Route: 058
     Dates: start: 20240126, end: 20240216
  2. OZEMPIC [Suspect]
     Active Substance: SEMAGLUTIDE
     Indication: Type 2 diabetes mellitus
     Dosage: 0.5 MG, QW (FIRST INJECTOR)
     Route: 058
     Dates: start: 20240223, end: 20240315
  3. OZEMPIC [Suspect]
     Active Substance: SEMAGLUTIDE
     Dosage: 0.5 MG, QW (SECOND INJECTOR)
     Route: 058
     Dates: start: 20240322, end: 20240412
  4. SYMAZIDE [Concomitant]
     Indication: Type 2 diabetes mellitus
     Dosage: 60 BID (UNITS NOT REPORTED)
  5. METFORMIN HYDROCHLORIDE [Concomitant]
     Active Substance: METFORMIN HYDROCHLORIDE
     Indication: Type 2 diabetes mellitus
     Dosage: 1000 TID (UNITS NOT REPORTED)

REACTIONS (2)
  - Optic disc haemorrhage [Not Recovered/Not Resolved]
  - Cholelithiasis [Unknown]

NARRATIVE: CASE EVENT DATE: 20240511
